FAERS Safety Report 5073494-9 (Version None)
Quarter: 2006Q3

REPORT INFORMATION
  Report Type: 
  Country: None (occurrence: None)
  Receive Date: 20060803
  Receipt Date: 20060727
  Transmission Date: 20061208
  Serious: Yes (Other)
  Sender: FDA-Public Use
  Company Number: DE-2006-021148

PATIENT
  Age: 32 Year
  Sex: Female
  Weight: 72 kg

DRUGS (4)
  1. SOTALOL HYDROCHLORIDE [Suspect]
     Indication: SUPRAVENTRICULAR TACHYCARDIA
     Dosage: SEE IMAGE
     Route: 048
     Dates: start: 19980101, end: 20060501
  2. SOTALOL HYDROCHLORIDE [Suspect]
     Indication: VENTRICULAR TACHYCARDIA
     Dosage: SEE IMAGE
     Route: 048
     Dates: start: 19980101, end: 20060501
  3. SOTALOL HYDROCHLORIDE [Suspect]
     Indication: SUPRAVENTRICULAR TACHYCARDIA
     Dosage: SEE IMAGE
     Route: 048
     Dates: start: 20060501, end: 20060601
  4. SOTALOL HYDROCHLORIDE [Suspect]
     Indication: VENTRICULAR TACHYCARDIA
     Dosage: SEE IMAGE
     Route: 048
     Dates: start: 20060501, end: 20060601

REACTIONS (13)
  - ABDOMINAL DISTENSION [None]
  - ARRHYTHMIA [None]
  - ASTHENIA [None]
  - BLOOD CREATININE INCREASED [None]
  - BLOOD URIC ACID INCREASED [None]
  - DIARRHOEA [None]
  - DRUG INEFFECTIVE [None]
  - DYSPNOEA [None]
  - GALLBLADDER DISORDER [None]
  - GASTRIC DISORDER [None]
  - LACTOSE INTOLERANCE [None]
  - MALAISE [None]
  - THERAPEUTIC RESPONSE UNEXPECTED WITH DRUG SUBSTITUTION [None]
